FAERS Safety Report 4339042-3 (Version None)
Quarter: 2004Q2

REPORT INFORMATION
  Report Type: 
  Country: None (occurrence: None)
  Receive Date: 20040412
  Receipt Date: 20040331
  Transmission Date: 20050107
  Serious: Yes (Hospitalization, Other)
  Sender: FDA-Public Use
  Company Number: 163-20785-04030356

PATIENT
  Age: 71 Year
  Sex: Male
  Weight: 89.3586 kg

DRUGS (24)
  1. THALOMID [Suspect]
     Indication: MYELOFIBROSIS
     Dosage: SEE IMAGE
     Route: 048
     Dates: start: 20030916, end: 20031101
  2. THALOMID [Suspect]
     Indication: PANCYTOPENIA
     Dosage: SEE IMAGE
     Route: 048
     Dates: start: 20030916, end: 20031101
  3. THALOMID [Suspect]
     Indication: MYELOFIBROSIS
     Dosage: SEE IMAGE
     Route: 048
     Dates: start: 20031101, end: 20031121
  4. THALOMID [Suspect]
     Indication: PANCYTOPENIA
     Dosage: SEE IMAGE
     Route: 048
     Dates: start: 20031101, end: 20031121
  5. THALOMID [Suspect]
     Indication: MYELOFIBROSIS
     Dosage: SEE IMAGE
     Route: 048
     Dates: start: 20040122, end: 20040311
  6. THALOMID [Suspect]
     Indication: PANCYTOPENIA
     Dosage: SEE IMAGE
     Route: 048
     Dates: start: 20040122, end: 20040311
  7. PREDNISONE [Suspect]
     Indication: MYELOFIBROSIS
     Dosage: SEE IMAGE
     Route: 048
     Dates: start: 20030916, end: 20040301
  8. PREDNISONE [Suspect]
     Indication: PANCYTOPENIA
     Dosage: SEE IMAGE
     Route: 048
     Dates: start: 20030916, end: 20040301
  9. PREDNISONE [Suspect]
     Indication: MYELOFIBROSIS
     Dosage: SEE IMAGE
     Route: 048
     Dates: start: 20030916, end: 20040301
  10. PREDNISONE [Suspect]
     Indication: PANCYTOPENIA
     Dosage: SEE IMAGE
     Route: 048
     Dates: start: 20030916, end: 20040301
  11. CYCLOSPORINE [Concomitant]
  12. FOLIC ACID [Concomitant]
  13. LASIX [Concomitant]
  14. LEVAQUIN [Concomitant]
  15. COMBIVENT [Concomitant]
  16. PREVACID [Concomitant]
  17. MULTIVITAMMIN (MULTIVITAMINS) [Concomitant]
  18. MIRALAX [Concomitant]
  19. SENOKOT-S (SENOKOT-S) [Concomitant]
  20. ZOCOR [Concomitant]
  21. ATIVAN [Concomitant]
  22. COMPAZINE [Concomitant]
  23. VICODIN [Concomitant]
  24. PRILOSEC [Concomitant]

REACTIONS (46)
  - ACUTE LEUKAEMIA [None]
  - ACUTE MYELOID LEUKAEMIA [None]
  - ANAEMIA [None]
  - ANAEMIA MACROCYTIC [None]
  - ANGINA PECTORIS [None]
  - ANOREXIA [None]
  - ARTHRITIS [None]
  - ARTHRITIS BACTERIAL [None]
  - ASTHENIA [None]
  - BACTERIAL SEPSIS [None]
  - BLOOD CALCIUM DECREASED [None]
  - BLOOD CREATININE DECREASED [None]
  - BLOOD GLUCOSE INCREASED [None]
  - BLOOD UREA INCREASED [None]
  - BRONCHITIS [None]
  - CHEST PAIN [None]
  - COUGH [None]
  - DEPRESSION [None]
  - DYSPNOEA EXERTIONAL [None]
  - ECCHYMOSIS [None]
  - EPISTAXIS [None]
  - ESSENTIAL THROMBOCYTHAEMIA [None]
  - FEELING JITTERY [None]
  - INCREASED TENDENCY TO BRUISE [None]
  - MARROW HYPERPLASIA [None]
  - MONOCYTE PERCENTAGE INCREASED [None]
  - MYELOFIBROSIS [None]
  - MYELOPROLIFERATIVE DISORDER [None]
  - NASAL CONGESTION [None]
  - NAUSEA [None]
  - NEUTROPHIL PERCENTAGE DECREASED [None]
  - OEDEMA PERIPHERAL [None]
  - PAIN [None]
  - PCO2 DECREASED [None]
  - PETECHIAE [None]
  - PHARYNGITIS [None]
  - PLATELET COUNT DECREASED [None]
  - PLATELET PRODUCTION DECREASED [None]
  - PROTHROMBIN TIME PROLONGED [None]
  - SINUSITIS [None]
  - THROMBOSIS [None]
  - UPPER RESPIRATORY TRACT INFECTION [None]
  - URINARY TRACT INFECTION [None]
  - UROSEPSIS [None]
  - WEIGHT INCREASED [None]
  - WHITE BLOOD CELL COUNT INCREASED [None]
